FAERS Safety Report 10480687 (Version 1)
Quarter: 2014Q3

REPORT INFORMATION
  Report Type: Spontaneous
  Country: US (occurrence: US)
  Receive Date: 20140929
  Receipt Date: 20140929
  Transmission Date: 20150326
  Serious: Yes (Other)
  Sender: FDA-Public Use
  Company Number: US-PFIZER INC-2014261367

PATIENT
  Sex: Female
  Weight: 227 kg

DRUGS (1)
  1. CHANTIX [Suspect]
     Active Substance: VARENICLINE TARTRATE
     Dosage: UNK
     Dates: start: 201409

REACTIONS (3)
  - Suicide attempt [Unknown]
  - Hepatic enzyme increased [Unknown]
  - Depression [Unknown]

NARRATIVE: CASE EVENT DATE: 201409
